FAERS Safety Report 9191751 (Version 5)
Quarter: 2013Q4

REPORT INFORMATION
  Report Type: Spontaneous
  Country: US (occurrence: US)
  Receive Date: 20130326
  Receipt Date: 20131111
  Transmission Date: 20140711
  Serious: No
  Sender: FDA-Public Use
  Company Number: US-009507513-1303USA009352

PATIENT
  Sex: Female
  Weight: 112.93 kg

DRUGS (7)
  1. IMPLANON [Suspect]
     Indication: CONTRACEPTION
     Dosage: 1 DF, UNK
     Dates: start: 20100527
  2. FOLIC ACID [Concomitant]
  3. PLAQUENIL [Concomitant]
  4. LISINOPRIL [Concomitant]
  5. METHOTREXATE [Concomitant]
  6. ZANTAC [Concomitant]
  7. IBUPROFEN [Concomitant]

REACTIONS (2)
  - Metrorrhagia [Recovered/Resolved]
  - Medical device complication [Unknown]
